FAERS Safety Report 13818843 (Version 1)
Quarter: 2017Q3

REPORT INFORMATION
  Report Type: Spontaneous
  Country: CA (occurrence: CA)
  Receive Date: 20170801
  Receipt Date: 20170801
  Transmission Date: 20171127
  Serious: Yes (Other)
  Sender: FDA-Public Use
  Company Number: CA-HLSUS-2017-CA-000801

PATIENT
  Age: 49 Year
  Sex: Female

DRUGS (4)
  1. CLOZARIL [Suspect]
     Active Substance: CLOZAPINE
     Indication: SCHIZOPHRENIA
     Dosage: 150 MG EVERY DAY
  2. ACETYLSALICYLIC ACID EC [Concomitant]
     Indication: PRODUCT USED FOR UNKNOWN INDICATION
  3. RISPERDAL CONSTA [Concomitant]
     Active Substance: RISPERIDONE
     Indication: PRODUCT USED FOR UNKNOWN INDICATION
     Route: 065
  4. BENZTROPINE [Concomitant]
     Active Substance: BENZTROPINE
     Indication: PRODUCT USED FOR UNKNOWN INDICATION
     Route: 065

REACTIONS (5)
  - Polyuria [Unknown]
  - Polydipsia [Unknown]
  - Blood glucose increased [Unknown]
  - Therapy cessation [Unknown]
  - Glycosylated haemoglobin increased [Unknown]
